FAERS Safety Report 14730907 (Version 2)
Quarter: 2018Q3

REPORT INFORMATION
  Report Type: Spontaneous
  Country: US (occurrence: US)
  Receive Date: 20180406
  Receipt Date: 20180704
  Transmission Date: 20181010
  Serious: Yes (Death)
  Sender: FDA-Public Use
  Company Number: US-TAIHO ONCOLOGY INC-EU-2018-00456

PATIENT
  Age: 68 Year
  Sex: Female
  Weight: 44.08 kg

DRUGS (1)
  1. LONSURF [Suspect]
     Active Substance: TIPIRACIL HYDROCHLORIDE\TRIFLURIDINE
     Indication: COLON CANCER STAGE IV
     Dosage: CYCLE 3 STARTED 21MAY2018
     Route: 048
     Dates: start: 20180305

REACTIONS (4)
  - Fatigue [Unknown]
  - White blood cell count decreased [Unknown]
  - Death [Fatal]
  - Headache [Unknown]

NARRATIVE: CASE EVENT DATE: 2018
